FAERS Safety Report 5083159-5 (Version None)
Quarter: 2006Q3

REPORT INFORMATION
  Report Type: 
  Country: None (occurrence: None)
  Receive Date: 20060724
  Receipt Date: 20031121
  Transmission Date: 20061208
  Serious: Yes (Hospitalization)
  Sender: FDA-Public Use
  Company Number: DRON00206001471

PATIENT
  Age: 52 Year
  Sex: Male
  Weight: 77 kg

DRUGS (8)
  1. MARINOL [Suspect]
     Indication: MULTIPLE SCLEROSIS
     Dosage: ORAL DAILY DOSE: TITRATION DOSE FROM 2.5 MG TO 20 MG
     Route: 048
     Dates: start: 20010907, end: 20011212
  2. MARINOL [Suspect]
     Indication: MUSCLE SPASTICITY
     Dosage: ORAL DAILY DOSE: TITRATION DOSE FROM 2.5 MG TO 20 MG
     Route: 048
     Dates: start: 20010907, end: 20011212
  3. MARINOL [Suspect]
     Indication: MULTIPLE SCLEROSIS
     Dosage: ORAL DAILY DOSE: TITRATION DOSE FROM 2.5 MG TO 20 MG
     Route: 048
     Dates: start: 20011219, end: 20020903
  4. MARINOL [Suspect]
     Indication: MUSCLE SPASTICITY
     Dosage: ORAL DAILY DOSE: TITRATION DOSE FROM 2.5 MG TO 20 MG
     Route: 048
     Dates: start: 20011219, end: 20020903
  5. BACLOFEN [Concomitant]
  6. EVENING PRIMROSE OIL (EVENING PRIMROSE OIL) [Concomitant]
  7. IBUPROFEN [Concomitant]
  8. MEBEVERINE (MEBEVERINE) [Concomitant]

REACTIONS (3)
  - FALL [None]
  - HEAD INJURY [None]
  - MULTIPLE SCLEROSIS [None]
